FAERS Safety Report 10432641 (Version 1)
Quarter: 2014Q3

REPORT INFORMATION
  Report Type: Spontaneous
  Country: US (occurrence: None)
  Receive Date: 20140904
  Receipt Date: 20140904
  Transmission Date: 20150326
  Serious: No
  Sender: FDA-Public Use
  Company Number: None

PATIENT
  Sex: Female
  Weight: 116 kg

DRUGS (1)
  1. ADAPALERIN [Suspect]
     Active Substance: ADAPALENE
     Indication: ACNE
     Dates: start: 201407, end: 201408

REACTIONS (2)
  - Product substitution issue [None]
  - Drug ineffective [None]
